FAERS Safety Report 7767930-4 (Version None)
Quarter: 2011Q3

REPORT INFORMATION
  Report Type: 
  Country: None (occurrence: None)
  Receive Date: 20110922
  Receipt Date: 20101008
  Transmission Date: 20111222
  Serious: No
  Sender: FDA-Public Use
  Company Number: US-ASTRAZENECA-2010SE47761

PATIENT
  Age: 56 Year
  Sex: Female
  Weight: 66.2 kg

DRUGS (2)
  1. SEROQUEL XR [Suspect]
     Indication: ANXIETY
     Route: 048
  2. SEROQUEL XR [Suspect]
     Indication: SOMNOLENCE
     Route: 048

REACTIONS (3)
  - INSOMNIA [None]
  - FEELING ABNORMAL [None]
  - DRUG DOSE OMISSION [None]
